FAERS Safety Report 8828009 (Version 1)
Quarter: 2012Q4

REPORT INFORMATION
  Report Type: 
  Country: DE (occurrence: DE)
  Receive Date: 20121005
  Receipt Date: 20121005
  Transmission Date: 20130627
  Serious: Yes (Other)
  Sender: FDA-Public Use
  Company Number: DE-JNJFOC-20120910480

PATIENT
  Sex: Male

DRUGS (4)
  1. ZYTIGA [Suspect]
     Indication: METASTASES TO PROSTATE
     Route: 048
     Dates: start: 201208
  2. PANTOZOL [Concomitant]
     Route: 048
  3. LISODURA [Concomitant]
     Route: 048
  4. SIMVAHEXAL [Concomitant]
     Route: 048

REACTIONS (5)
  - Optic ischaemic neuropathy [Unknown]
  - Papilloedema [Recovered/Resolved with Sequelae]
  - Retinal ischaemia [Recovered/Resolved with Sequelae]
  - Retinal haemorrhage [Recovered/Resolved with Sequelae]
  - Blindness [Unknown]
